FAERS Safety Report 13513106 (Version 1)
Quarter: 2017Q2

REPORT INFORMATION
  Report Type: Spontaneous
  Country: US (occurrence: US)
  Receive Date: 20170504
  Receipt Date: 20170504
  Transmission Date: 20170830
  Serious: No
  Sender: FDA-Public Use
  Company Number: US-ABBVIE-16K-163-1720650-00

PATIENT
  Age: 63 Year
  Sex: Male

DRUGS (1)
  1. ANDROGEL [Suspect]
     Active Substance: TESTOSTERONE
     Indication: PRODUCT USED FOR UNKNOWN INDICATION
     Route: 061

REACTIONS (2)
  - Asthenia [Not Recovered/Not Resolved]
  - Drug ineffective [Not Recovered/Not Resolved]

NARRATIVE: CASE EVENT DATE: 201608
